FAERS Safety Report 5381307-0 (Version None)
Quarter: 2007Q3

REPORT INFORMATION
  Report Type: 
  Country: None (occurrence: None)
  Receive Date: 20070705
  Receipt Date: 20060927
  Transmission Date: 20080115
  Serious: Yes (Other)
  Sender: FDA-Public Use
  Company Number: 14873

PATIENT
  Age: 46 Year
  Sex: Female

DRUGS (2)
  1. PACLITAXEL [Suspect]
     Indication: OVARIAN CANCER
     Dosage: 275 MG Q3W IV
     Route: 042
     Dates: start: 20060426, end: 20060809
  2. CARBOPLATIN [Concomitant]

REACTIONS (1)
  - NEUROPATHY [None]
